FAERS Safety Report 5469478-9 (Version None)
Quarter: 2007Q3

REPORT INFORMATION
  Report Type: 
  Country: None (occurrence: None)
  Receive Date: 20070925
  Receipt Date: 20070925
  Transmission Date: 20080115
  Serious: Yes (Other)
  Sender: FDA-Public Use
  Company Number: None

PATIENT
  Sex: Female
  Weight: 104.3273 kg

DRUGS (1)
  1. NORVASC [Suspect]
     Indication: HYPERTENSION
     Dosage: 1 TABLET DAILY OTHER
     Dates: start: 20070226, end: 20070806

REACTIONS (12)
  - ANOREXIA [None]
  - ARTHRALGIA [None]
  - DYSPNOEA [None]
  - FALL [None]
  - FATIGUE [None]
  - FLUID RETENTION [None]
  - JOINT SPRAIN [None]
  - MIDDLE INSOMNIA [None]
  - PALPITATIONS [None]
  - PITTING OEDEMA [None]
  - SWELLING [None]
  - WEIGHT INCREASED [None]
